FAERS Safety Report 6400492-2 (Version None)
Quarter: 2009Q4

REPORT INFORMATION
  Report Type: 
  Country: None (occurrence: None)
  Receive Date: 20091014
  Receipt Date: 20091007
  Transmission Date: 20100525
  Serious: Yes (Other)
  Sender: FDA-Public Use
  Company Number: GB-BAXTER-2009BH015472

PATIENT
  Age: 38 Year
  Sex: Male

DRUGS (7)
  1. CYCLOPHOSPHAMIDE [Suspect]
     Indication: CHEMOTHERAPY
     Route: 065
     Dates: start: 20090815
  2. ETOPOSIDE [Interacting]
     Indication: CHEMOTHERAPY
     Route: 065
     Dates: start: 20090815
  3. CCNU [Interacting]
     Indication: CHEMOTHERAPY
     Route: 065
     Dates: start: 20090815
  4. DARUNAVIR [Concomitant]
     Indication: HIV INFECTION
     Route: 065
  5. RITONAVIR [Concomitant]
     Indication: HIV INFECTION
     Route: 065
  6. TENOFOVIR DISOPROXIL FUMARATE [Concomitant]
     Indication: HIV INFECTION
     Route: 065
  7. EMTRICITABINE [Concomitant]
     Indication: HIV INFECTION
     Route: 065

REACTIONS (2)
  - DRUG INTERACTION [None]
  - NEUTROPENIA [None]
